FAERS Safety Report 15851641 (Version 3)
Quarter: 2019Q1

REPORT INFORMATION
  Report Type: Report from Study
  Country: FR (occurrence: FR)
  Receive Date: 20190122
  Receipt Date: 20190305
  Transmission Date: 20190417
  Serious: Yes (Death, Other)
  Sender: FDA-Public Use
  Company Number: FR-ACCORD-102679

PATIENT
  Age: 74 Year
  Sex: Male

DRUGS (5)
  1. IMIQUIMOD. [Suspect]
     Active Substance: IMIQUIMOD
     Indication: KAPOSI^S SARCOMA
     Route: 065
  2. DAUNORUBICIN [Suspect]
     Active Substance: DAUNORUBICIN
     Indication: KAPOSI^S SARCOMA
     Route: 065
  3. PACLITAXEL/PACLITAXEL LIPOSOME [Suspect]
     Active Substance: PACLITAXEL
     Indication: KAPOSI^S SARCOMA
     Route: 065
  4. INTERFERON [Suspect]
     Active Substance: INTERFERON
     Indication: KAPOSI^S SARCOMA
     Route: 065
  5. VINBLASTINE [Suspect]
     Active Substance: VINBLASTINE
     Indication: KAPOSI^S SARCOMA
     Route: 065

REACTIONS (5)
  - Malignant neoplasm progression [None]
  - General physical health deterioration [Fatal]
  - Obstructive airways disorder [None]
  - Kaposi^s sarcoma [Unknown]
  - Treatment failure [Fatal]
